FAERS Safety Report 9777134 (Version 1)
Quarter: 2013Q4

REPORT INFORMATION
  Report Type: Spontaneous
  Country: US (occurrence: US)
  Receive Date: 20131221
  Receipt Date: 20131221
  Transmission Date: 20140711
  Serious: No
  Sender: FDA-Public Use
  Company Number: US-B.I. PHARMACEUTICALS,INC./RIDGEFIELD-2013-BI-41351BP

PATIENT
  Age: 51 Year
  Sex: Female
  Weight: 58 kg

DRUGS (2)
  1. ZANTAC (RANITIDINE HYDROCHLORIDE) [Suspect]
     Indication: DYSPEPSIA
     Route: 048
     Dates: start: 2004
  2. ZANTAC (RANITIDINE HYDROCHLORIDE) [Suspect]
     Indication: DYSPEPSIA

REACTIONS (9)
  - Throat tightness [Not Recovered/Not Resolved]
  - Swollen tongue [Not Recovered/Not Resolved]
  - Chest discomfort [Not Recovered/Not Resolved]
  - Chest pain [Not Recovered/Not Resolved]
  - Rash generalised [Not Recovered/Not Resolved]
  - Diarrhoea [Not Recovered/Not Resolved]
  - Headache [Not Recovered/Not Resolved]
  - Depression [Not Recovered/Not Resolved]
  - Ex-tobacco user [Not Recovered/Not Resolved]
